FAERS Safety Report 17941411 (Version 1)
Quarter: 2020Q2

REPORT INFORMATION
  Report Type: Spontaneous
  Country: KW (occurrence: KW)
  Receive Date: 20200624
  Receipt Date: 20200624
  Transmission Date: 20200714
  Serious: Yes (Hospitalization, Other)
  Sender: FDA-Public Use
  Company Number: KW-PURDUE PHARMA-CAN-2020-0011202

PATIENT
  Age: 8 Year
  Sex: Male
  Weight: 40 kg

DRUGS (4)
  1. NON-PMN METHYLPHENIDATE HYDROCHLORIDE [Suspect]
     Active Substance: METHYLPHENIDATE HYDROCHLORIDE
     Indication: BEHAVIOUR DISORDER DUE TO A GENERAL MEDICAL CONDITION
     Dosage: 25 MG, DAILY
     Route: 065
  2. ARIPIPRAZOLE. [Suspect]
     Active Substance: ARIPIPRAZOLE
     Dosage: 2 ML, NOCTE
     Route: 065
  3. ARIPIPRAZOLE. [Suspect]
     Active Substance: ARIPIPRAZOLE
     Indication: BEHAVIOUR DISORDER DUE TO A GENERAL MEDICAL CONDITION
     Dosage: 5 ML, DAILY
     Route: 065
  4. NON-PMN METHYLPHENIDATE HYDROCHLORIDE [Suspect]
     Active Substance: METHYLPHENIDATE HYDROCHLORIDE
     Dosage: 5 MG, TID
     Route: 065

REACTIONS (1)
  - Stereotypy [Recovered/Resolved]
